FAERS Safety Report 11361842 (Version 2)
Quarter: 2015Q4

REPORT INFORMATION
  Report Type: Report from Study
  Country: US (occurrence: US)
  Receive Date: 20150810
  Receipt Date: 20151008
  Transmission Date: 20160304
  Serious: Yes (Hospitalization, Other)
  Sender: FDA-Public Use
  Company Number: PHEH2015US015337

PATIENT
  Age: 58 Year
  Sex: Female

DRUGS (1)
  1. GILENYA [Suspect]
     Active Substance: FINGOLIMOD HYDROCHLORIDE
     Indication: RELAPSING-REMITTING MULTIPLE SCLEROSIS
     Dosage: 0.5 MG, QD
     Route: 048
     Dates: start: 20150806, end: 20150806

REACTIONS (9)
  - Hyperhidrosis [Recovering/Resolving]
  - Nausea [Recovering/Resolving]
  - Aphasia [Recovering/Resolving]
  - Pain in extremity [Recovering/Resolving]
  - Confusional state [Unknown]
  - Hypoaesthesia [Recovering/Resolving]
  - Tremor [Recovering/Resolving]
  - Muscle spasms [Recovering/Resolving]
  - Blood pressure increased [Unknown]

NARRATIVE: CASE EVENT DATE: 20150806
